FAERS Safety Report 6696358-3 (Version None)
Quarter: 2010Q2

REPORT INFORMATION
  Report Type: 
  Country: None (occurrence: None)
  Receive Date: 20100421
  Receipt Date: 20100414
  Transmission Date: 20101027
  Serious: Yes (Life-Threatening, Other)
  Sender: FDA-Public Use
  Company Number: 2010JP002277

PATIENT
  Age: 54 Year
  Sex: Male

DRUGS (2)
  1. TACROLIMUS [Suspect]
     Indication: LIVER TRANSPLANT
     Dosage: 2 MG,BID, ORAL
     Route: 048
  2. MYCOPHENOLIC ACID [Concomitant]

REACTIONS (7)
  - BLOOD OSMOLARITY ABNORMAL [None]
  - COMA [None]
  - HYPONATRAEMIA [None]
  - LETHARGY [None]
  - LUNG INFECTION [None]
  - OSMOTIC DEMYELINATION SYNDROME [None]
  - SPEECH DISORDER [None]
